FAERS Safety Report 12831589 (Version 1)
Quarter: 2016Q4

REPORT INFORMATION
  Report Type: Spontaneous
  Country: GB (occurrence: GB)
  Receive Date: 20161009
  Receipt Date: 20161009
  Transmission Date: 20170207
  Serious: Yes (Other)
  Sender: FDA-Public Use
  Company Number: GB-ABBVIE-16P-167-1748968-00

PATIENT
  Age: 18 Year
  Sex: Female

DRUGS (1)
  1. HUMIRA [Suspect]
     Active Substance: ADALIMUMAB
     Indication: IRRITABLE BOWEL SYNDROME
     Route: 050

REACTIONS (6)
  - Skin cancer [Unknown]
  - Intentional self-injury [Unknown]
  - Injection site reaction [Unknown]
  - Mental disorder [Unknown]
  - Arthralgia [Unknown]
  - Melanocytic naevus [Unknown]
